FAERS Safety Report 21135368 (Version 1)
Quarter: 2022Q3

REPORT INFORMATION
  Report Type: Spontaneous
  Country: BE (occurrence: None)
  Receive Date: 20220727
  Receipt Date: 20220727
  Transmission Date: 20221027
  Serious: Yes (Other)
  Sender: FDA-Public Use
  Company Number: BE-ROCHE-3143612

PATIENT
  Sex: Female

DRUGS (9)
  1. RITUXIMAB [Suspect]
     Active Substance: RITUXIMAB
     Indication: Renal transplant
     Dosage: 1 DOSE ON 10/7
     Route: 065
     Dates: start: 20211007
  2. RITUXIMAB [Suspect]
     Active Substance: RITUXIMAB
     Indication: Nephrotic syndrome
  3. CELLCEPT [Suspect]
     Active Substance: MYCOPHENOLATE MOFETIL
     Indication: Renal transplant
     Route: 065
  4. CELLCEPT [Suspect]
     Active Substance: MYCOPHENOLATE MOFETIL
     Indication: Nephrotic syndrome
  5. LOSARTAN [Concomitant]
     Active Substance: LOSARTAN
     Dosage: (3/7)
  6. LOSARTAN [Concomitant]
     Active Substance: LOSARTAN
     Dosage: SINCE 9/7.
  7. TACROLIMUS [Concomitant]
     Active Substance: TACROLIMUS
  8. SOLU-MEDROL [Concomitant]
     Active Substance: METHYLPREDNISOLONE SODIUM SUCCINATE
     Dosage: 2 X 500 MG
  9. PREDNISONE [Concomitant]
     Active Substance: PREDNISONE

REACTIONS (3)
  - Nephrotic syndrome [Unknown]
  - Off label use [Unknown]
  - Proteinuria [Unknown]
